FAERS Safety Report 8964055 (Version 1)
Quarter: 2012Q4

REPORT INFORMATION
  Report Type: Report from Study
  Country: RU (occurrence: RU)
  Receive Date: 20121214
  Receipt Date: 20121214
  Transmission Date: 20130627
  Serious: Yes (Life-Threatening, Hospitalization)
  Sender: FDA-Public Use
  Company Number: RU-TEVA-374849ISR

PATIENT
  Age: 68 Year
  Sex: Female
  Weight: 92 kg

DRUGS (11)
  1. 5-FLUOROURACIL [Suspect]
     Indication: BREAST CANCER
     Route: 042
     Dates: start: 20100921, end: 20100921
  2. TRASTUZUMAB [Suspect]
     Indication: BREAST CANCER
     Route: 058
     Dates: start: 20100628, end: 20100628
  3. TRASTUZUMAB [Suspect]
     Route: 058
     Dates: start: 20100719, end: 20100921
  4. DOCETAXEL [Suspect]
     Route: 042
     Dates: start: 20100628
  5. EPIRUBICIN [Suspect]
     Indication: BREAST CANCER
     Route: 042
     Dates: start: 20100921, end: 20100921
  6. CYCLOPHOSPHAMIDE [Suspect]
     Indication: BREAST CANCER
     Route: 042
     Dates: start: 20100921, end: 20100921
  7. ENALAPRIL [Concomitant]
     Dates: start: 2008, end: 20101025
  8. ENALAPRIL [Concomitant]
     Dates: start: 20101019, end: 20101207
  9. ENALAPRIL [Concomitant]
     Dates: start: 20101208
  10. GLICLAZIDE [Concomitant]
     Dates: start: 20100628, end: 20101014
  11. ATENOLOL [Concomitant]
     Dates: start: 2008, end: 20101018

REACTIONS (1)
  - Pulmonary embolism [Recovering/Resolving]
